FAERS Safety Report 5366575-3 (Version None)
Quarter: 2007Q2

REPORT INFORMATION
  Report Type: 
  Country: None (occurrence: None)
  Receive Date: 20070622
  Receipt Date: 20070611
  Transmission Date: 20071010
  Serious: Yes (Hospitalization, Other)
  Sender: FDA-Public Use
  Company Number: JP-PFIZER INC-2007044077

PATIENT
  Sex: Female
  Weight: 58.6 kg

DRUGS (7)
  1. FARMORUBICINA RD [Suspect]
     Indication: BREAST CANCER
     Route: 042
     Dates: start: 20070403, end: 20070427
  2. ENDOXAN [Suspect]
     Indication: BREAST CANCER
     Route: 042
     Dates: start: 20070403, end: 20070427
  3. NASEA [Concomitant]
     Route: 042
     Dates: start: 20070403, end: 20070427
  4. DECADRON [Concomitant]
     Route: 042
     Dates: start: 20070403, end: 20070427
  5. RINDERON [Concomitant]
     Route: 048
     Dates: start: 20070404, end: 20070502
  6. MAGNESIUM OXIDE [Concomitant]
     Route: 048
  7. DIOVAN [Concomitant]
     Route: 048

REACTIONS (2)
  - FEBRILE NEUTROPENIA [None]
  - INTERSTITIAL LUNG DISEASE [None]
